FAERS Safety Report 12550040 (Version 8)
Quarter: 2017Q1

REPORT INFORMATION
  Report Type: Spontaneous
  Country: CA (occurrence: CA)
  Receive Date: 20160712
  Receipt Date: 20170328
  Transmission Date: 20170428
  Serious: No
  Sender: FDA-Public Use
  Company Number: CA-GLAXOSMITHKLINE-CA2016GSK088316

PATIENT
  Age: 38 Year
  Sex: Male

DRUGS (15)
  1. COSENTYX [Suspect]
     Active Substance: SECUKINUMAB
     Dosage: 300 MG, QMO
     Route: 058
     Dates: start: 20170227
  2. METHOTREXATE. [Suspect]
     Active Substance: METHOTREXATE
     Indication: PRODUCT USED FOR UNKNOWN INDICATION
  3. COSENTYX [Suspect]
     Active Substance: SECUKINUMAB
     Indication: PSORIATIC ARTHROPATHY
     Dosage: 300 MG, QMO
     Route: 058
     Dates: start: 20160903
  4. HUMIRA [Concomitant]
     Active Substance: ADALIMUMAB
  5. SIMPONI [Concomitant]
     Active Substance: GOLIMUMAB
  6. ALLOPURINOL. [Concomitant]
     Active Substance: ALLOPURINOL
  7. CIMZIA [Concomitant]
     Active Substance: CERTOLIZUMAB PEGOL
  8. DOVONEX [Concomitant]
     Active Substance: CALCIPOTRIENE
  9. FUROSEMIDE. [Concomitant]
     Active Substance: FUROSEMIDE
  10. VOLTAREN [Suspect]
     Active Substance: DICLOFENAC SODIUM
     Indication: PRODUCT USED FOR UNKNOWN INDICATION
     Dosage: UNK
     Route: 065
  11. COSENTYX [Suspect]
     Active Substance: SECUKINUMAB
     Indication: PSORIASIS
     Dosage: 300 MG, QMO
     Route: 058
     Dates: start: 20161030
  12. OTEZLA [Concomitant]
     Active Substance: APREMILAST
  13. CELEBREX [Concomitant]
     Active Substance: CELECOXIB
  14. COSENTYX [Suspect]
     Active Substance: SECUKINUMAB
     Indication: ANKYLOSING SPONDYLITIS
     Dosage: 150 MG, QMO
     Route: 058
     Dates: start: 20160806, end: 20160827
  15. COLCHICINE. [Concomitant]
     Active Substance: COLCHICINE

REACTIONS (18)
  - Joint lock [Unknown]
  - Neck pain [Unknown]
  - Fatigue [Unknown]
  - Skin plaque [Unknown]
  - Joint swelling [Not Recovered/Not Resolved]
  - Coccydynia [Unknown]
  - Weight increased [Unknown]
  - Pruritus [Unknown]
  - Psoriasis [Unknown]
  - Peripheral swelling [Not Recovered/Not Resolved]
  - Hypersomnia [Unknown]
  - Spinal pain [Unknown]
  - Back pain [Unknown]
  - Drug effect incomplete [Unknown]
  - Increased appetite [Unknown]
  - Depressed mood [Unknown]
  - Arthralgia [Not Recovered/Not Resolved]
  - Asthenia [Unknown]

NARRATIVE: CASE EVENT DATE: 20160608
